FAERS Safety Report 9325685 (Version 1)
Quarter: 2013Q2

REPORT INFORMATION
  Report Type: Spontaneous
  Country: US (occurrence: None)
  Receive Date: 20130531
  Receipt Date: 20130531
  Transmission Date: 20140414
  Serious: Yes (Other)
  Sender: FDA-Public Use
  Company Number: None

PATIENT
  Age: 69 Year
  Sex: Female
  Weight: 75.3 kg

DRUGS (1)
  1. BYETTA [Suspect]
     Route: 058

REACTIONS (5)
  - Nausea [None]
  - Vomiting [None]
  - Dyspepsia [None]
  - Dysphonia [None]
  - Blood glucose increased [None]
